FAERS Safety Report 20399538 (Version 2)
Quarter: 2022Q1

REPORT INFORMATION
  Report Type: Spontaneous
  Country: US (occurrence: US)
  Receive Date: 20220131
  Receipt Date: 20220201
  Transmission Date: 20220423
  Serious: No
  Sender: FDA-Public Use
  Company Number: US-ABBVIE-21K-163-4008507-00

PATIENT
  Sex: Female
  Weight: 82.5 kg

DRUGS (5)
  1. HUMIRA [Suspect]
     Active Substance: ADALIMUMAB
     Indication: Arthritis
     Route: 058
     Dates: start: 202103
  2. HUMIRA [Suspect]
     Active Substance: ADALIMUMAB
     Indication: Arthritis
  3. HUMIRA [Suspect]
     Active Substance: ADALIMUMAB
     Indication: HLA-B*27 assay
  4. HUMIRA [Suspect]
     Active Substance: ADALIMUMAB
     Indication: Spondylitis
  5. PREDNISONE [Suspect]
     Active Substance: PREDNISONE
     Indication: Arthritis
     Route: 030

REACTIONS (8)
  - Injection site urticaria [Recovered/Resolved]
  - Injection site urticaria [Recovering/Resolving]
  - Injection site swelling [Recovered/Resolved]
  - Injection site erythema [Recovered/Resolved]
  - Injection site pruritus [Recovered/Resolved]
  - Off label use [Not Recovered/Not Resolved]
  - Epistaxis [Unknown]
  - Miliaria [Unknown]

NARRATIVE: CASE EVENT DATE: 20210101
